FAERS Safety Report 25713327 (Version 3)
Quarter: 2025Q3

REPORT INFORMATION
  Report Type: Spontaneous
  Country: JP (occurrence: JP)
  Receive Date: 20250822
  Receipt Date: 20250909
  Transmission Date: 20251021
  Serious: Yes (Other)
  Sender: SANOFI AVENTIS
  Company Number: JP-SA-2025SA247215

PATIENT
  Age: 77 Year
  Sex: Male

DRUGS (1)
  1. JEVTANA [Suspect]
     Active Substance: CABAZITAXEL
     Indication: Hormone-refractory prostate cancer
     Route: 041

REACTIONS (4)
  - Disseminated cryptococcosis [Unknown]
  - Meningitis cryptococcal [Recovering/Resolving]
  - Altered state of consciousness [Recovering/Resolving]
  - Febrile neutropenia [Unknown]
